FAERS Safety Report 7655655-5 (Version None)
Quarter: 2011Q3

REPORT INFORMATION
  Report Type: 
  Country: None (occurrence: None)
  Receive Date: 20110729
  Receipt Date: 20110722
  Transmission Date: 20111222
  Serious: Yes (Other)
  Sender: FDA-Public Use
  Company Number: 2010SP040485

PATIENT
  Sex: Male

DRUGS (15)
  1. TERBASMIN [Concomitant]
  2. NEXIUM [Concomitant]
  3. SPIRIVA [Concomitant]
  4. SYMBICORT FORTE [Concomitant]
  5. OXYCONTIN [Suspect]
     Indication: PRODUCT USED FOR UNKNOWN INDICATION
     Dosage: 20 MG;BID;
     Dates: start: 20060710
  6. OXYCODONE HCL [Concomitant]
     Indication: PRODUCT USED FOR UNKNOWN INDICATION
     Dosage: 10 MG;
     Dates: start: 20051019
  7. AKARIN [Concomitant]
  8. NORTRIPTYLINE HCL [Concomitant]
  9. IMOZOP [Concomitant]
  10. SYMBICORT [Concomitant]
  11. LAMOTRIGINE [Concomitant]
  12. BRICANYL [Concomitant]
  13. MIRTAZAPINE [Suspect]
     Indication: PRODUCT USED FOR UNKNOWN INDICATION
  14. AMITRIPTYLINE HCL [Suspect]
     Indication: PRODUCT USED FOR UNKNOWN INDICATION
     Dosage: 100 MG;QD;
     Dates: start: 20040427, end: 20091001
  15. ACETAMINOPHEN [Concomitant]

REACTIONS (2)
  - DENTAL CARIES [None]
  - DRY MOUTH [None]
